FAERS Safety Report 11875623 (Version 2)
Quarter: 2016Q1

REPORT INFORMATION
  Report Type: Report from Study
  Country: FR (occurrence: FR)
  Receive Date: 20151229
  Receipt Date: 20160321
  Transmission Date: 20160526
  Serious: Yes (Hospitalization)
  Sender: FDA-Public Use
  Company Number: FR-TOLMAR, INC.-2015FR011519

PATIENT
  Age: 77 Year
  Sex: Male

DRUGS (1)
  1. ELIGARD [Suspect]
     Active Substance: LEUPROLIDE ACETATE
     Indication: PRODUCT USED FOR UNKNOWN INDICATION
     Dosage: 45 MG, UNK FREQ, CYCLE 1
     Route: 058
     Dates: start: 20141029

REACTIONS (1)
  - Umbilical hernia [Not Recovered/Not Resolved]

NARRATIVE: CASE EVENT DATE: 20150128
